FAERS Safety Report 7124693-3 (Version None)
Quarter: 2010Q4

REPORT INFORMATION
  Report Type: 
  Country: None (occurrence: None)
  Receive Date: 20101122
  Receipt Date: 20101122
  Transmission Date: 20110411
  Serious: Yes (Death)
  Sender: FDA-Public Use
  Company Number: None

PATIENT
  Age: 41 Year
  Sex: Male
  Weight: 81.6475 kg

DRUGS (1)
  1. LUNESTA [Suspect]
     Indication: INSOMNIA
     Dosage: 1 PILL NIGHTLY PO  APPROXIMATELY 7 YEARS
     Route: 048

REACTIONS (5)
  - ALCOHOL USE [None]
  - BIPOLAR DISORDER [None]
  - COMPLETED SUICIDE [None]
  - DEPRESSION [None]
  - SPEECH DISORDER [None]
